FAERS Safety Report 6503937-2 (Version None)
Quarter: 2009Q4

REPORT INFORMATION
  Report Type: 
  Country: None (occurrence: None)
  Receive Date: 20091217
  Receipt Date: 20091214
  Transmission Date: 20100525
  Serious: Yes (Hospitalization)
  Sender: FDA-Public Use
  Company Number: FR-BAYER-200942906GPV

PATIENT
  Age: 62 Year
  Sex: Male

DRUGS (7)
  1. NEXAVAR [Suspect]
     Indication: HEPATIC NEOPLASM MALIGNANT
     Dosage: TOTAL DAILY DOSE: 800 MG
     Route: 048
     Dates: start: 20070601, end: 20070801
  2. NEXAVAR [Suspect]
     Route: 048
     Dates: start: 20071001, end: 20071201
  3. NEXAVAR [Suspect]
     Route: 048
     Dates: start: 20080101
  4. SPIRONOLACTONE [Concomitant]
  5. LASILIX [Concomitant]
  6. INSULIN [Concomitant]
  7. AVLOCARDYL [Concomitant]

REACTIONS (3)
  - COUGH [None]
  - INTERSTITIAL LUNG DISEASE [None]
  - PRODUCTIVE COUGH [None]
